FAERS Safety Report 19362974 (Version 1)
Quarter: 2021Q2

REPORT INFORMATION
  Report Type: Spontaneous
  Country: US (occurrence: US)
  Receive Date: 20210602
  Receipt Date: 20210602
  Transmission Date: 20210717
  Serious: No
  Sender: FDA-Public Use
  Company Number: US-PFIZER INC-2021395729

PATIENT
  Age: 40 Year
  Sex: Female
  Weight: 104.33 kg

DRUGS (2)
  1. CIPROFLOXACIN. [Concomitant]
     Active Substance: CIPROFLOXACIN
     Dosage: 500 MG, 2X/DAY (500 MG (ONE TABLET EVERY 12 HOURS))
     Dates: start: 20210401
  2. METRONIDAZOLE. [Suspect]
     Active Substance: METRONIDAZOLE
     Indication: ABDOMINAL INFECTION
     Dosage: 500 MG, 3X/DAY
     Dates: start: 20210401

REACTIONS (1)
  - Drug ineffective [Unknown]
